FAERS Safety Report 18395053 (Version 11)
Quarter: 2021Q4

REPORT INFORMATION
  Report Type: Report from Study
  Country: GB (occurrence: GB)
  Receive Date: 20201016
  Receipt Date: 20211203
  Transmission Date: 20220303
  Serious: Yes (Life-Threatening, Hospitalization, Other)
  Sender: FDA-Public Use
  Company Number: GB-BRISTOL-MYERS SQUIBB COMPANY-BMS-2020-081132

PATIENT
  Age: 60 Year
  Sex: Female
  Weight: 97.5 kg

DRUGS (7)
  1. NIVOLUMAB [Suspect]
     Active Substance: NIVOLUMAB
     Indication: Ovarian cancer
     Dosage: 240 MILLIGRAM
     Route: 042
     Dates: start: 20200915, end: 20200915
  2. IPILIMUMAB [Suspect]
     Active Substance: IPILIMUMAB
     Indication: Ovarian cancer
     Dosage: 97.5 MILLIGRAM
     Route: 042
     Dates: start: 20200915, end: 20200915
  3. RUCAPARIB [Suspect]
     Active Substance: RUCAPARIB
     Indication: Ovarian cancer
     Dosage: 600 MILLIGRAM
     Route: 048
     Dates: start: 20200915, end: 20200927
  4. BISOPROLOL [Concomitant]
     Active Substance: BISOPROLOL
     Indication: Blood pressure measurement
     Dosage: 2.5 MILLIGRAM, QD
     Route: 048
     Dates: start: 2010, end: 20200928
  5. RAMIPRIL [Concomitant]
     Active Substance: RAMIPRIL
     Indication: Blood pressure measurement
     Dosage: 3.75 MILLIGRAM, QD
     Route: 048
     Dates: start: 2010, end: 20200928
  6. OMEPRAZOLE [Concomitant]
     Active Substance: OMEPRAZOLE
     Indication: Gastrooesophageal reflux disease
     Dosage: 20 MILLIGRAM, QD
     Route: 048
     Dates: end: 20200928
  7. RIVAROXABAN [Concomitant]
     Active Substance: RIVAROXABAN
     Indication: Arterial thrombosis
     Dosage: 20 MILLIGRAM, QD
     Route: 048
     Dates: start: 200901

REACTIONS (7)
  - Blood creatinine increased [Recovered/Resolved]
  - Diarrhoea [Recovered/Resolved]
  - Hypotension [Recovered/Resolved]
  - Fatigue [Not Recovered/Not Resolved]
  - Sepsis [Recovered/Resolved]
  - Acute kidney injury [Recovered/Resolved]
  - Drug eruption [Recovered/Resolved]

NARRATIVE: CASE EVENT DATE: 20200925
